FAERS Safety Report 7775197-6 (Version None)
Quarter: 2011Q3

REPORT INFORMATION
  Report Type: 
  Country: None (occurrence: None)
  Receive Date: 20110923
  Receipt Date: 20110916
  Transmission Date: 20111222
  Serious: Yes (Hospitalization)
  Sender: FDA-Public Use
  Company Number: JP-BRISTOL-MYERS SQUIBB COMPANY-16051021

PATIENT
  Age: 69 Year
  Sex: Female
  Weight: 44 kg

DRUGS (7)
  1. BROTIZOLAM [Concomitant]
     Dosage: TAB
     Dates: start: 20100922
  2. SODIUM PICOSULFATE [Concomitant]
     Dosage: TAB
     Dates: start: 20100922
  3. CLONAZEPAM [Concomitant]
     Dosage: TABS
     Dates: start: 20110209
  4. FORSENID [Concomitant]
     Dosage: TAB
     Dates: start: 20100922
  5. LORAZEPAM [Concomitant]
     Dosage: TABS
  6. ABILIFY [Suspect]
     Indication: SCHIZOPHRENIA
     Dosage: 16JUN11-24AUG;7SEP11-ONG: 18MG AND INCREASED TO 30MG AT REG 2 (25AUG2011-6SEP11) 10JUN11-15JUN:12MG
     Route: 048
     Dates: start: 20110610
  7. MAGNESIUM SULFATE [Concomitant]
     Dosage: TAB
     Dates: start: 20110209

REACTIONS (2)
  - ALTERED STATE OF CONSCIOUSNESS [None]
  - STUPOR [None]
